FAERS Safety Report 7460870-X (Version None)
Quarter: 2011Q2

REPORT INFORMATION
  Report Type: 
  Country: None (occurrence: None)
  Receive Date: 20110505
  Receipt Date: 20110426
  Transmission Date: 20111010
  Serious: Yes (Other)
  Sender: FDA-Public Use
  Company Number: DE-ASTRAZENECA-2011SE24005

PATIENT
  Age: 82 Year
  Sex: Female

DRUGS (8)
  1. TELMISARTAN [Suspect]
     Indication: HYPERTENSION
     Route: 048
  2. ALENDRONATE SODIUM [Suspect]
  3. OMEPRAL [Suspect]
     Route: 048
  4. DOXAZOSIN MESYLATE [Suspect]
  5. BUP-4 [Suspect]
  6. ONEALFA [Suspect]
  7. CONIEL [Suspect]
  8. PRAZAXA [Suspect]
     Indication: ATRIAL FIBRILLATION
     Route: 048
     Dates: start: 20110323, end: 20110330

REACTIONS (3)
  - RHABDOMYOLYSIS [None]
  - HAEMATURIA [None]
  - BLOOD CREATINE PHOSPHOKINASE INCREASED [None]
